FAERS Safety Report 6243982-8 (Version None)
Quarter: 2009Q2

REPORT INFORMATION
  Report Type: 
  Country: None (occurrence: None)
  Receive Date: 20090623
  Receipt Date: 20090609
  Transmission Date: 20091009
  Serious: Yes (Hospitalization)
  Sender: FDA-Public Use
  Company Number: 2006-149793-NL

PATIENT
  Age: 29 Year
  Sex: Female
  Weight: 79.4 kg

DRUGS (5)
  1. NUVARING [Suspect]
     Indication: CONTRACEPTION
     Dosage: VAGINAL
     Route: 067
     Dates: start: 20050621, end: 20050913
  2. LEVAQUIN [Concomitant]
  3. SOMA [Concomitant]
  4. NAPROSYN [Concomitant]
  5. VICODIN [Concomitant]

REACTIONS (10)
  - BACK PAIN [None]
  - DEEP VEIN THROMBOSIS [None]
  - FALL [None]
  - FOOT FRACTURE [None]
  - MITRAL VALVE INCOMPETENCE [None]
  - MUSCLE SPASMS [None]
  - PNEUMONIA [None]
  - PULMONARY EMBOLISM [None]
  - PULMONARY INFARCTION [None]
  - TRICUSPID VALVE INCOMPETENCE [None]
